FAERS Safety Report 5631682-4 (Version None)
Quarter: 2008Q1

REPORT INFORMATION
  Report Type: 
  Country: None (occurrence: None)
  Receive Date: 20080220
  Receipt Date: 20080208
  Transmission Date: 20080703
  Serious: Yes (Other)
  Sender: FDA-Public Use
  Company Number: US-WYE-H02559908

PATIENT
  Sex: Male

DRUGS (7)
  1. TORISEL [Suspect]
     Indication: METASTATIC RENAL CELL CARCINOMA
     Route: 042
     Dates: start: 20070917, end: 20080101
  2. TORISEL [Suspect]
     Route: 042
     Dates: start: 20080101
  3. FERROUS SULFATE TAB [Concomitant]
  4. IBUPROFEN [Concomitant]
  5. ASCORBIC ACID/ERGOCALCIFEROL/FOLIC ACID/NICOTINAMIDE/PANTHENOL/RETINOL [Concomitant]
  6. CALCIUM [Concomitant]
  7. ERGOCALCIFEROL [Concomitant]

REACTIONS (1)
  - HAEMOLYTIC ANAEMIA [None]
